FAERS Safety Report 8414741-2 (Version None)
Quarter: 2012Q2

REPORT INFORMATION
  Report Type: 
  Country: None (occurrence: None)
  Receive Date: 20120605
  Receipt Date: 20120529
  Transmission Date: 20120825
  Serious: Yes (Hospitalization)
  Sender: FDA-Public Use
  Company Number: FR-ABBOTT-12P-056-0940952-00

PATIENT
  Age: 16 Year
  Sex: Female

DRUGS (5)
  1. DEPAKENE [Suspect]
     Indication: EPILEPSY
     Route: 048
     Dates: start: 20110216, end: 20110222
  2. LAMOTRIGINE [Suspect]
     Route: 048
     Dates: start: 20110302, end: 20110316
  3. LAMOTRIGINE [Suspect]
     Route: 048
     Dates: start: 20110223, end: 20110301
  4. LAMOTRIGINE [Suspect]
     Indication: EPILEPSY
     Route: 048
     Dates: start: 20110216, end: 20110222
  5. DEPAKENE [Suspect]
     Route: 048
     Dates: start: 20110223, end: 20110316

REACTIONS (7)
  - RASH [None]
  - DRUG RASH WITH EOSINOPHILIA AND SYSTEMIC SYMPTOMS [None]
  - FACE OEDEMA [None]
  - CYTOLYTIC HEPATITIS [None]
  - EOSINOPHILIA [None]
  - LYMPHADENOPATHY [None]
  - PYREXIA [None]
